FAERS Safety Report 13862594 (Version 1)
Quarter: 2017Q3

REPORT INFORMATION
  Report Type: Spontaneous
  Country: US (occurrence: US)
  Receive Date: 20170814
  Receipt Date: 20170814
  Transmission Date: 20171127
  Serious: No
  Sender: FDA-Public Use
  Company Number: US-ASTRAZENECA-2017SE80366

PATIENT
  Age: 4854 Day
  Sex: Female
  Weight: 46.3 kg

DRUGS (1)
  1. PULMICORT TURBUHALER [Suspect]
     Active Substance: BUDESONIDE
     Indication: EOSINOPHILIC OESOPHAGITIS
     Dosage: 0.5MG/2ML,FOUR RESPULES MIXED WITH NEONATE NUTRA POWDER AS A SLURRY, ORALLY ONCE DAILY
     Route: 055
     Dates: start: 20170715

REACTIONS (7)
  - Off label use [Not Recovered/Not Resolved]
  - Intentional product use issue [Unknown]
  - Product taste abnormal [Not Recovered/Not Resolved]
  - Drug administered to patient of inappropriate age [Unknown]
  - Product use in unapproved indication [Unknown]
  - Incorrect route of drug administration [Unknown]
  - Vomiting [Unknown]

NARRATIVE: CASE EVENT DATE: 20170715
